FAERS Safety Report 17577813 (Version 1)
Quarter: 2020Q1

REPORT INFORMATION
  Report Type: Spontaneous
  Country: DE (occurrence: DE)
  Receive Date: 20200324
  Receipt Date: 20200324
  Transmission Date: 20200409
  Serious: Yes (Death, Other)
  Sender: FDA-Public Use
  Company Number: DE-BAXTER-2020BAX006289

PATIENT
  Age: 22 Year
  Sex: Female

DRUGS (7)
  1. PREDNISOLONE. [Suspect]
     Active Substance: PREDNISOLONE
     Dosage: 100 MG, DAILY (REINDUCTION)
     Route: 065
     Dates: start: 1997
  2. VINCRISTINE [Suspect]
     Active Substance: VINCRISTINE
     Indication: ACUTE LYMPHOCYTIC LEUKAEMIA
     Dosage: UNK, CYCLIC INDUCTION; CYCLICAL
     Route: 065
     Dates: start: 199610
  3. PREDNISOLONE. [Suspect]
     Active Substance: PREDNISOLONE
     Indication: ACUTE LYMPHOCYTIC LEUKAEMIA
     Dosage: 100 MG, DAILY (X 4 WEEKS) AS INDUCTION THERAPY
     Route: 065
     Dates: start: 199610
  4. DAUNORUBICIN HYDROCHLORIDE. [Suspect]
     Active Substance: DAUNORUBICIN HYDROCHLORIDE
     Indication: ACUTE LYMPHOCYTIC LEUKAEMIA
     Dosage: UNK, CYCLIC; INDUCTION; CYCLICAL
     Route: 065
     Dates: start: 199610
  5. ASPARAGINASE [Suspect]
     Active Substance: ASPARAGINASE
     Indication: ACUTE LYMPHOCYTIC LEUKAEMIA
     Dosage: UNK, CYCLIC; INDUCTION; CYCLICAL
     Route: 065
     Dates: start: 199610
  6. VINCRISTINE [Suspect]
     Active Substance: VINCRISTINE
     Dosage: UNK, WEEKLY; REINDUCTION
     Route: 065
     Dates: start: 1997
  7. DOXIL [Suspect]
     Active Substance: DOXORUBICIN HYDROCHLORIDE
     Indication: ACUTE LYMPHOCYTIC LEUKAEMIA
     Dosage: UNK, CYCLIC; INDUCTION; CYCLICAL
     Route: 065
     Dates: start: 1997

REACTIONS (2)
  - Herpes simplex [Fatal]
  - Cholangitis chronic [Unknown]

NARRATIVE: CASE EVENT DATE: 199610
